FAERS Safety Report 8015673-4 (Version None)
Quarter: 2011Q4

REPORT INFORMATION
  Report Type: 
  Country: None (occurrence: None)
  Receive Date: 20111228
  Receipt Date: 20111228
  Transmission Date: 20120403
  Serious: Yes (Life-Threatening, Disabling)
  Sender: FDA-Public Use
  Company Number: None

PATIENT
  Age: 33 Year
  Sex: Female
  Weight: 60.9 kg

DRUGS (5)
  1. PAXIL [Concomitant]
  2. CYMBALTA [Suspect]
     Indication: ANXIETY
     Dosage: 30 MG 1/DAY
     Dates: start: 20111026, end: 20111111
  3. CYMBALTA [Suspect]
     Indication: ARTHRALGIA
     Dosage: 30 MG 1/DAY
     Dates: start: 20111026, end: 20111111
  4. CYMBALTA [Suspect]
     Indication: FATIGUE
     Dosage: 30 MG 1/DAY
     Dates: start: 20111026, end: 20111111
  5. CARDIZEM [Concomitant]

REACTIONS (25)
  - HEADACHE [None]
  - PHOTOPHOBIA [None]
  - CHILLS [None]
  - GAIT DISTURBANCE [None]
  - NIGHTMARE [None]
  - NIGHT SWEATS [None]
  - NAUSEA [None]
  - DIZZINESS [None]
  - IRRITABILITY [None]
  - NO THERAPEUTIC RESPONSE [None]
  - INSOMNIA [None]
  - DIARRHOEA [None]
  - FATIGUE [None]
  - HYPERACUSIS [None]
  - WITHDRAWAL SYNDROME [None]
  - HOT FLUSH [None]
  - ANGER [None]
  - SUICIDAL IDEATION [None]
  - TREMOR [None]
  - BACK PAIN [None]
  - MUSCLE SPASMS [None]
  - NECK PAIN [None]
  - MALAISE [None]
  - DEPRESSION [None]
  - EMOTIONAL DISORDER [None]
